FAERS Safety Report 22007044 (Version 5)
Quarter: 2023Q2

REPORT INFORMATION
  Report Type: Report from Study
  Country: US (occurrence: US)
  Receive Date: 20230217
  Receipt Date: 20230426
  Transmission Date: 20230721
  Serious: Yes (Congenital Anomaly, Other)
  Sender: FDA-Public Use
  Company Number: US-GILEAD-2023-0617200

PATIENT
  Age: 38 Week
  Sex: Female
  Weight: 3.005 kg

DRUGS (2)
  1. EMTRICITABINE\TENOFOVIR [Suspect]
     Active Substance: EMTRICITABINE\TENOFOVIR
     Indication: HIV infection
     Dosage: 1 DOSAGE FORM, QD
     Route: 064
     Dates: start: 20230105
  2. TIVICAY [Suspect]
     Active Substance: DOLUTEGRAVIR SODIUM
     Indication: HIV infection
     Dosage: 50 MG, QD
     Route: 064
     Dates: start: 20230105

REACTIONS (2)
  - Ventricular extrasystoles [Unknown]
  - Foetal exposure during pregnancy [Recovered/Resolved]
